FAERS Safety Report 7817747-7 (Version None)
Quarter: 2011Q4

REPORT INFORMATION
  Report Type: 
  Country: None (occurrence: None)
  Receive Date: 20111017
  Receipt Date: 20111006
  Transmission Date: 20120403
  Serious: Yes (Death, Hospitalization, Other)
  Sender: FDA-Public Use
  Company Number: BR-JNJFOC-20110806379

PATIENT
  Sex: Male

DRUGS (1)
  1. REMICADE [Suspect]
     Indication: PSORIASIS
     Route: 042
     Dates: start: 20090101, end: 20110101

REACTIONS (7)
  - ASCITES [None]
  - BLOOD TRIGLYCERIDES INCREASED [None]
  - PLEURAL EFFUSION [None]
  - DEATH [None]
  - BLOOD CHOLESTEROL INCREASED [None]
  - METASTATIC NEOPLASM [None]
  - WEIGHT INCREASED [None]
